FAERS Safety Report 6326226-8 (Version None)
Quarter: 2009Q3

REPORT INFORMATION
  Report Type: 
  Country: None (occurrence: None)
  Receive Date: 20090824
  Receipt Date: 20090814
  Transmission Date: 20100115
  Serious: Yes (Other)
  Sender: FDA-Public Use
  Company Number: RU-GENENTECH-288969

PATIENT
  Sex: Male

DRUGS (1)
  1. MABTHERA [Suspect]
     Indication: MANTLE CELL LYMPHOMA
     Dosage: 700 MG, Q2M
     Route: 042
     Dates: start: 20080601

REACTIONS (2)
  - PAIN IN EXTREMITY [None]
  - VISUAL ACUITY REDUCED [None]
